FAERS Safety Report 11472708 (Version 2)
Quarter: 2015Q4

REPORT INFORMATION
  Report Type: Report from Study
  Country: CO (occurrence: CO)
  Receive Date: 20150908
  Receipt Date: 20151104
  Transmission Date: 20160304
  Serious: Yes (Hospitalization)
  Sender: FDA-Public Use
  Company Number: CO-SUNOVION-2015SUN000063

PATIENT
  Age: 16 Year
  Sex: Male
  Weight: 58.7 kg

DRUGS (9)
  1. LURASIDONE HYDROCHLORIDE [Suspect]
     Active Substance: LURASIDONE HYDROCHLORIDE
     Indication: SCHIZOPHRENIA
     Dosage: UNK, QD
     Route: 048
     Dates: start: 20150812, end: 20150825
  2. LORAZEPAM. [Concomitant]
     Active Substance: LORAZEPAM
     Indication: ANXIETY DISORDER DUE TO A GENERAL MEDICAL CONDITION
     Dosage: 5 MG, TID
     Route: 048
     Dates: start: 20150825
  3. LORAZEPAM. [Concomitant]
     Active Substance: LORAZEPAM
     Dosage: 3 MG, 0-1-1/2
     Route: 048
     Dates: start: 20150814, end: 20150814
  4. LORAZEPAM. [Concomitant]
     Active Substance: LORAZEPAM
     Dosage: 5 MG, 1-1-1/2
     Dates: start: 20150813, end: 20150813
  5. LORAZEPAM. [Concomitant]
     Active Substance: LORAZEPAM
     Dosage: 1 MG, 0-0-1/2
     Route: 048
     Dates: start: 20150812, end: 20150812
  6. LORAZEPAM. [Concomitant]
     Active Substance: LORAZEPAM
     Dosage: 5 MG, 1-1-1/2
     Route: 048
     Dates: start: 20150815, end: 20150818
  7. DIPHENHYDRAMINE. [Concomitant]
     Active Substance: DIPHENHYDRAMINE
     Indication: INSOMNIA RELATED TO ANOTHER MENTAL CONDITION
     Dosage: 50 MG, QD
     Route: 048
     Dates: start: 20150803, end: 20150903
  8. LORAZEPAM. [Concomitant]
     Active Substance: LORAZEPAM
     Dosage: 3 MG, 0-1-1/2
     Route: 048
     Dates: start: 20150819, end: 20150819
  9. LORAZEPAM. [Concomitant]
     Active Substance: LORAZEPAM
     Dosage: 5 MG, 1-1--1/2
     Route: 048
     Dates: start: 20150820, end: 20150825

REACTIONS (1)
  - Schizophrenia [Recovered/Resolved]

NARRATIVE: CASE EVENT DATE: 20150826
